FAERS Safety Report 9470452 (Version 3)
Quarter: 2013Q4

REPORT INFORMATION
  Report Type: Spontaneous
  Country: FR (occurrence: FR)
  Receive Date: 20130822
  Receipt Date: 20131014
  Transmission Date: 20140711
  Serious: Yes (Other)
  Sender: FDA-Public Use
  Company Number: FR-TEVA-426844ISR

PATIENT
  Age: 32 Year
  Sex: Female

DRUGS (2)
  1. COPAXONE [Suspect]
     Indication: MULTIPLE SCLEROSIS
     Dosage: 20 MILLIGRAM DAILY; AUTOJECT AT 8/10 MM
     Route: 058
     Dates: start: 201308, end: 201308
  2. APAISYL [Interacting]
     Indication: INJECTION SITE PRURITUS
     Dates: start: 201308

REACTIONS (7)
  - Drug hypersensitivity [Recovered/Resolved]
  - Drug hypersensitivity [Unknown]
  - Drug therapeutic incompatibility [Unknown]
  - Generalised erythema [Recovered/Resolved]
  - Pruritus generalised [Recovered/Resolved]
  - Dyspnoea [Recovered/Resolved]
  - Burning sensation [Unknown]
